FAERS Safety Report 9616564 (Version 2)
Quarter: 2013Q4

REPORT INFORMATION
  Report Type: Spontaneous
  Country: CR (occurrence: CR)
  Receive Date: 20131011
  Receipt Date: 20131218
  Transmission Date: 20140711
  Serious: Yes (Other)
  Sender: FDA-Public Use
  Company Number: PHHY2013CR114332

PATIENT
  Age: 30 Year
  Sex: Female
  Weight: 60 kg

DRUGS (2)
  1. VOLTAREN [Suspect]
     Indication: NEURALGIA
     Dosage: 75 MG, UNK
     Route: 030
     Dates: start: 201310
  2. VITAMIN B12 [Suspect]
     Indication: NEURALGIA
     Dosage: 2 ML, UNK
     Route: 030
     Dates: start: 201310

REACTIONS (3)
  - Fat necrosis [Unknown]
  - Nodule [Unknown]
  - Soft tissue mass [Unknown]
